FAERS Safety Report 9478877 (Version 2)
Quarter: 2013Q3

REPORT INFORMATION
  Report Type: Spontaneous
  Country: US (occurrence: US)
  Receive Date: 20130827
  Receipt Date: 20130920
  Transmission Date: 20140515
  Serious: Yes (Death)
  Sender: FDA-Public Use
  Company Number: US-FRI-1000048027

PATIENT
  Sex: Female
  Weight: 86.1 kg

DRUGS (3)
  1. NAMENDA [Suspect]
     Indication: DEMENTIA ALZHEIMER^S TYPE
  2. EXELON [Concomitant]
     Dosage: 4.6 MG
     Route: 062
  3. ZYPREXA [Concomitant]
     Dosage: 2.5 MG

REACTIONS (1)
  - Dementia [Fatal]
